FAERS Safety Report 13651998 (Version 1)
Quarter: 2017Q2

REPORT INFORMATION
  Report Type: Spontaneous
  Country: US (occurrence: US)
  Receive Date: 20170614
  Receipt Date: 20170614
  Transmission Date: 20170830
  Serious: Yes (Hospitalization, Other)
  Sender: FDA-Public Use
  Company Number: None

PATIENT
  Age: 48 Year
  Sex: Female
  Weight: 88.2 kg

DRUGS (16)
  1. PRILOSEC [Concomitant]
     Active Substance: OMEPRAZOLE MAGNESIUM
  2. LIPITOR [Concomitant]
     Active Substance: ATORVASTATIN CALCIUM
  3. RANEXA [Concomitant]
     Active Substance: RANOLAZINE
  4. PROZAC [Concomitant]
     Active Substance: FLUOXETINE HYDROCHLORIDE
  5. MECLIZINE [Concomitant]
     Active Substance: MECLIZINE HYDROCHLORIDE
  6. NITROSTAT [Concomitant]
     Active Substance: NITROGLYCERIN
  7. CYCLOBENZAPRINE. [Concomitant]
     Active Substance: CYCLOBENZAPRINE
  8. GABAPENTIN. [Concomitant]
     Active Substance: GABAPENTIN
  9. LASIX [Concomitant]
     Active Substance: FUROSEMIDE
  10. GAMMAGARD LIQUID [Suspect]
     Active Substance: HUMAN IMMUNOGLOBULIN G
     Indication: IMMUNODEFICIENCY COMMON VARIABLE
     Dosage: ?          OTHER FREQUENCY:MONTHLY;?
     Route: 042
     Dates: start: 20170427, end: 20170614
  11. POTASSIUM [Concomitant]
     Active Substance: POTASSIUM
  12. ALBUTEROL. [Concomitant]
     Active Substance: ALBUTEROL
  13. GAMMAGARD LIQUID [Suspect]
     Active Substance: HUMAN IMMUNOGLOBULIN G
     Indication: IMMUNODEFICIENCY COMMON VARIABLE
     Dosage: ?          OTHER FREQUENCY:WEEKLY;?
     Route: 058
     Dates: start: 20161006, end: 20170404
  14. FERROUS SULFATE. [Concomitant]
     Active Substance: FERROUS SULFATE
  15. XANAX [Concomitant]
     Active Substance: ALPRAZOLAM
  16. ASPIRIN. [Concomitant]
     Active Substance: ASPIRIN

REACTIONS (1)
  - Acute hepatitis C [None]

NARRATIVE: CASE EVENT DATE: 20170531
